FAERS Safety Report 14893114 (Version 1)
Quarter: 2018Q2

REPORT INFORMATION
  Report Type: Spontaneous
  Country: US (occurrence: US)
  Receive Date: 20180426
  Receipt Date: 20180426
  Transmission Date: 20180711
  Serious: No
  Sender: FDA-Public Use
  Company Number: None

PATIENT
  Age: 59 Year
  Sex: Female

DRUGS (17)
  1. URSODIOL. [Concomitant]
     Active Substance: URSODIOL
  2. PRAVASTATIN. [Concomitant]
     Active Substance: PRAVASTATIN
  3. PLAVIX [Concomitant]
     Active Substance: CLOPIDOGREL BISULFATE
  4. PANTOPRAZOLE [Concomitant]
     Active Substance: PANTOPRAZOLE
  5. GABAPENTIN. [Concomitant]
     Active Substance: GABAPENTIN
  6. COUMADIN [Concomitant]
     Active Substance: WARFARIN SODIUM
  7. COQ10 [Concomitant]
     Active Substance: UBIDECARENONE
  8. OCALIVA [Suspect]
     Active Substance: OBETICHOLIC ACID
     Indication: PRIMARY BILIARY CHOLANGITIS
     Route: 048
     Dates: start: 20170228
  9. ZETIA [Concomitant]
     Active Substance: EZETIMIBE
  10. CALCIUM/D [Concomitant]
  11. NAMENDA [Concomitant]
     Active Substance: MEMANTINE HYDROCHLORIDE
  12. GLUCOSAMINE [Concomitant]
     Active Substance: GLUCOSAMINE
  13. L-ARGININE [Concomitant]
     Active Substance: ARGININE
  14. PRESERVISION [Concomitant]
     Active Substance: MINERALS\VITAMINS
  15. VITAMIN D3 [Concomitant]
     Active Substance: CHOLECALCIFEROL
  16. FOLBEE PLUS [Concomitant]
  17. VITAMIN A [Concomitant]
     Active Substance: VITAMIN A

REACTIONS (1)
  - Pruritus [None]
